FAERS Safety Report 4280049-2 (Version None)
Quarter: 2004Q1

REPORT INFORMATION
  Report Type: 
  Country: None (occurrence: None)
  Receive Date: 20040126
  Receipt Date: 20030115
  Transmission Date: 20041129
  Serious: Yes (Hospitalization)
  Sender: FDA-Public Use
  Company Number: 2003-102605-NL

PATIENT
  Age: 54 Year
  Sex: Female
  Weight: 78 kg

DRUGS (1)
  1. MIRTAZAPINE + PLACEBO OR VENLAFAXINE + PLACEBO [Suspect]
     Indication: MAJOR DEPRESSION
     Dates: start: 20021205, end: 20021231

REACTIONS (5)
  - CHROMATURIA [None]
  - DRUG ERUPTION [None]
  - HEPATIC ENZYME INCREASED [None]
  - HEPATOTOXICITY [None]
  - VISION BLURRED [None]
